FAERS Safety Report 23782643 (Version 2)
Quarter: 2024Q2

REPORT INFORMATION
  Report Type: Spontaneous
  Country: IL (occurrence: IL)
  Receive Date: 20240425
  Receipt Date: 20240512
  Transmission Date: 20240716
  Serious: Yes (Other)
  Sender: FDA-Public Use
  Company Number: IL-JNJFOC-20240458964

PATIENT
  Age: 25 Year
  Sex: Female
  Weight: 69 kg

DRUGS (5)
  1. STELARA [Suspect]
     Active Substance: USTEKINUMAB
     Indication: Colitis ulcerative
     Route: 058
     Dates: start: 20230404
  2. STELARA [Suspect]
     Active Substance: USTEKINUMAB
  3. PREDINIS [Concomitant]
  4. ASPIRIN [Concomitant]
     Active Substance: ASPIRIN
  5. MOXYPEN [AMOXICILLIN TRIHYDRATE] [Concomitant]

REACTIONS (4)
  - Talipes [Unknown]
  - Gestational diabetes [Unknown]
  - Colitis ulcerative [Unknown]
  - Exposure during pregnancy [Recovered/Resolved]

NARRATIVE: CASE EVENT DATE: 20230601
